FAERS Safety Report 9352099 (Version 3)
Quarter: 2013Q3

REPORT INFORMATION
  Report Type: Spontaneous
  Country: BR (occurrence: BR)
  Receive Date: 20130617
  Receipt Date: 20130827
  Transmission Date: 20140515
  Serious: Yes (Other)
  Sender: FDA-Public Use
  Company Number: PHHY2013BR061395

PATIENT
  Age: 78 Year
  Sex: Male
  Weight: 59 kg

DRUGS (2)
  1. DOXAZOSIN MESYLATE SANDOZ [Suspect]
     Indication: URINE ABNORMALITY
     Dosage: 4 MG, UNK
     Route: 048
     Dates: start: 20130607, end: 20130612
  2. DOXAZOSIN MESYLATE SANDOZ [Suspect]
     Dosage: UNK UKN, UNK
     Route: 048

REACTIONS (1)
  - Haemorrhoids [Recovering/Resolving]
